FAERS Safety Report 7727399-2 (Version None)
Quarter: 2011Q3

REPORT INFORMATION
  Report Type: 
  Country: None (occurrence: None)
  Receive Date: 20110831
  Receipt Date: 20110817
  Transmission Date: 20111222
  Serious: Yes (Hospitalization)
  Sender: FDA-Public Use
  Company Number: 36560

PATIENT
  Age: 8 Month
  Sex: Male

DRUGS (3)
  1. PROPRANOLOL [Concomitant]
  2. TIMOPTIC [Suspect]
     Dosage: (2GTTS PER NOSTRIL NASAL)
     Route: 045
  3. SODIUM CHLORIDE [Concomitant]

REACTIONS (16)
  - DRUG INTERACTION [None]
  - HYPOTENSION [None]
  - LETHARGY [None]
  - METABOLIC ACIDOSIS [None]
  - MIOSIS [None]
  - WRONG DRUG ADMINISTERED [None]
  - INCORRECT ROUTE OF DRUG ADMINISTRATION [None]
  - ACCIDENTAL EXPOSURE [None]
  - CARDIOTOXICITY [None]
  - NERVOUS SYSTEM DISORDER [None]
  - PULSE ABNORMAL [None]
  - HEART RATE DECREASED [None]
  - PERIPHERAL COLDNESS [None]
  - RESPIRATORY RATE DECREASED [None]
  - DEPRESSED LEVEL OF CONSCIOUSNESS [None]
  - HYPOTONIA [None]
